FAERS Safety Report 4497329-8 (Version None)
Quarter: 2004Q4

REPORT INFORMATION
  Report Type: 
  Country: None (occurrence: None)
  Receive Date: 20041110
  Receipt Date: 20030203
  Transmission Date: 20050328
  Serious: Yes (Death, Congenital Anomaly)
  Sender: FDA-Public Use
  Company Number: PHEH2003US01221

PATIENT
  Sex: Female
  Weight: 3 kg

DRUGS (6)
  1. DIOVAN [Suspect]
     Dosage: 160 MG, UNK
     Route: 064
  2. XANAX [Suspect]
     Dosage: UNK, UNK
     Route: 064
  3. ADIPEX-P [Suspect]
  4. DIDREX [Suspect]
  5. HYDRALAZINE [Suspect]
  6. ZOLOFT [Suspect]

REACTIONS (19)
  - APGAR SCORE LOW [None]
  - ASCITES [None]
  - ATELECTASIS [None]
  - BLOOD GLUCOSE DECREASED [None]
  - BRONCHIOLITIS [None]
  - BRONCHITIS ACUTE [None]
  - CARDIO-RESPIRATORY ARREST NEONATAL [None]
  - CARDIOMEGALY [None]
  - DRUG EXPOSURE DURING PREGNANCY [None]
  - DYSTROPHIC CALCIFICATION [None]
  - KIDNEY MALFORMATION [None]
  - LOW CARDIAC OUTPUT SYNDROME [None]
  - NEONATAL RESPIRATORY DISTRESS SYNDROME [None]
  - OLIGOHYDRAMNIOS [None]
  - PNEUMOTHORAX [None]
  - PULMONARY CONGESTION [None]
  - PULMONARY HAEMORRHAGE [None]
  - PULMONARY HYPERTENSION [None]
  - RENAL VEIN THROMBOSIS [None]
